FAERS Safety Report 10011086 (Version 2)
Quarter: 2014Q1

REPORT INFORMATION
  Report Type: Spontaneous
  Country: US (occurrence: US)
  Receive Date: 20140314
  Receipt Date: 20140314
  Transmission Date: 20141002
  Serious: Yes (Death, Hospitalization)
  Sender: FDA-Public Use
  Company Number: US-LUNDBECK-DKLU1070505

PATIENT
  Age: 2 Year
  Sex: Male
  Weight: 12 kg

DRUGS (8)
  1. SABRIL (FOR ORAL SOLUTION) [Suspect]
     Indication: PRODUCT USED FOR UNKNOWN INDICATION
  2. GLYCOPYRROLATE [Concomitant]
     Indication: PRODUCT USED FOR UNKNOWN INDICATION
     Route: 048
     Dates: start: 20110216
  3. CALCIUM CARBONATE [Concomitant]
     Indication: RICKETS
     Route: 048
  4. POLY-VI-SOL [Concomitant]
     Indication: FAILURE TO THRIVE
     Route: 048
  5. CHOLECALCIFEROL [Concomitant]
     Indication: RICKETS
     Dosage: 2000 UNITS
  6. ACETAMINOPHEN [Concomitant]
     Indication: PAIN
     Route: 048
  7. ACETAMINOPHEN [Concomitant]
     Indication: FAILURE TO THRIVE
  8. DIAZEPAM [Concomitant]
     Indication: CONVULSION
     Dosage: AS NEEDED FOR SEIZURE LASTING MORE THAN 5 MINUTES
     Route: 050

REACTIONS (4)
  - Respiratory distress [Fatal]
  - Feeding disorder [Unknown]
  - Agitation [Unknown]
  - Convulsion [Recovered/Resolved]
